FAERS Safety Report 12549213 (Version 1)
Quarter: 2016Q3

REPORT INFORMATION
  Report Type: Spontaneous
  Country: SE (occurrence: SE)
  Receive Date: 20160712
  Receipt Date: 20160712
  Transmission Date: 20161109
  Serious: Yes (Hospitalization, Other)
  Sender: FDA-Public Use
  Company Number: SE-ELI_LILLY_AND_COMPANY-SE201607001338

PATIENT
  Age: 37 Year
  Sex: Male

DRUGS (2)
  1. MODIODAL [Interacting]
     Active Substance: MODAFINIL
     Indication: MULTIPLE SCLEROSIS
     Dosage: 200 MG, UNKNOWN
     Route: 065
     Dates: start: 20140408, end: 20160112
  2. CYMBALTA [Suspect]
     Active Substance: DULOXETINE HYDROCHLORIDE
     Indication: MULTIPLE SCLEROSIS
     Dosage: 60 MG, UNKNOWN
     Route: 065
     Dates: start: 20150625, end: 20160112

REACTIONS (4)
  - Drug interaction [Unknown]
  - Off label use [Unknown]
  - Bipolar I disorder [Unknown]
  - Mania [Recovered/Resolved]

NARRATIVE: CASE EVENT DATE: 20150625
